FAERS Safety Report 15355517 (Version 1)
Quarter: 2018Q3

REPORT INFORMATION
  Report Type: Report from Study
  Country: IT (occurrence: IT)
  Receive Date: 20180906
  Receipt Date: 20180906
  Transmission Date: 20181010
  Serious: Yes (Hospitalization, Other)
  Sender: FDA-Public Use
  Company Number: IT-BRISTOL-MYERS SQUIBB COMPANY-BMS-2018-082254

PATIENT
  Age: 70 Year
  Sex: Female

DRUGS (2)
  1. WARFARIN SODIUM. [Suspect]
     Active Substance: WARFARIN SODIUM
     Indication: ANTICOAGULANT THERAPY
     Dosage: UNK
     Route: 065
  2. INFLUENZA VACCINE [Interacting]
     Active Substance: INFLUENZA VIRUS VACCINE
     Indication: IMMUNISATION
     Dosage: UNK
     Route: 065

REACTIONS (3)
  - International normalised ratio increased [Unknown]
  - Drug interaction [Unknown]
  - Subarachnoid haemorrhage [Unknown]
